FAERS Safety Report 21556270 (Version 2)
Quarter: 2022Q4

REPORT INFORMATION
  Report Type: Spontaneous
  Country: PT (occurrence: PT)
  Receive Date: 20221104
  Receipt Date: 20221118
  Transmission Date: 20230113
  Serious: Yes (Other)
  Sender: FDA-Public Use
  Company Number: PT-TEVA-2022-PT-2822869

PATIENT
  Age: 56 Year
  Sex: Female

DRUGS (2)
  1. PACLITAXEL [Suspect]
     Active Substance: PACLITAXEL
     Indication: Serous cystadenocarcinoma ovary
     Dosage: 175 MG/M2
     Route: 065
  2. CARBOPLATIN [Suspect]
     Active Substance: CARBOPLATIN
     Indication: Serous cystadenocarcinoma ovary
     Route: 065

REACTIONS (1)
  - Peripheral sensory neuropathy [Unknown]
